FAERS Safety Report 14060989 (Version 11)
Quarter: 2018Q4

REPORT INFORMATION
  Report Type: Spontaneous
  Country: GB (occurrence: GB)
  Receive Date: 20171007
  Receipt Date: 20181020
  Transmission Date: 20190204
  Serious: Yes (Hospitalization, Other)
  Sender: FDA-Public Use
  Company Number: GB-AUROBINDO-AUR-APL-2017-41371

PATIENT
  Age: 73 Year
  Sex: Male

DRUGS (13)
  1. MST CONTINUS [Suspect]
     Active Substance: MORPHINE SULFATE
     Indication: BACK PAIN
     Dosage: 10 MG, BID
     Route: 048
     Dates: start: 20170710
  2. BUMETANIDE. [Concomitant]
     Active Substance: BUMETANIDE
     Dosage: 24 MILLIGRAM
     Route: 048
  3. FLUTICASONE W/FORMOTEROL [Concomitant]
     Indication: ASTHMA
     Dosage: 250 UG, BID
     Route: 065
     Dates: start: 20110318
  4. FORMOTEROL [Concomitant]
     Active Substance: FORMOTEROL
     Indication: PRODUCT USED FOR UNKNOWN INDICATION
     Dosage: UNK
     Route: 065
  5. MST CONTINUS [Suspect]
     Active Substance: MORPHINE SULFATE
     Dosage: 720 MG, UNK
     Route: 065
  6. BUMETANIDE. [Concomitant]
     Active Substance: BUMETANIDE
     Dosage: 1 MG, BID
     Route: 065
  7. FLUTICASONE. [Concomitant]
     Active Substance: FLUTICASONE
     Indication: ASTHMA
     Dosage: 250 UG, BID
     Route: 065
     Dates: start: 20110318
  8. BUMETANIDE. [Concomitant]
     Active Substance: BUMETANIDE
     Dosage: 4 MILLIGRAM
     Route: 048
  9. TAMSULOSIN [Suspect]
     Active Substance: TAMSULOSIN
     Indication: PRODUCT USED FOR UNKNOWN INDICATION
     Dosage: 400 UG, QD
     Route: 065
     Dates: start: 20110805
  10. SACUBITRIL W/VALSARTAN [Suspect]
     Active Substance: SACUBITRIL\VALSARTAN
     Indication: CARDIAC FAILURE
     Dosage: UNK
     Route: 048
     Dates: start: 20151204
  11. BUMETANIDE. [Concomitant]
     Active Substance: BUMETANIDE
     Indication: CARDIAC FAILURE
     Dosage: 1 MILLIGRAM, 3 TIMES A DAY
     Route: 048
     Dates: start: 20170809, end: 20170816
  12. SALBUTAMOL [Concomitant]
     Active Substance: ALBUTEROL
     Dosage: MCG PRN
     Route: 048
     Dates: start: 20121224
  13. SALBUTAMOL [Concomitant]
     Active Substance: ALBUTEROL
     Indication: ASTHMA
     Dosage: DOSE NOT REPORTED MCG, AS NEEDED ()
     Route: 048

REACTIONS (5)
  - Lower respiratory tract infection [Unknown]
  - Urinary retention [Recovered/Resolved]
  - Asthma [Recovered/Resolved]
  - Fall [Recovered/Resolved]
  - Urinary tract infection [Recovered/Resolved]

NARRATIVE: CASE EVENT DATE: 20170815
